FAERS Safety Report 4822134-X (Version None)
Quarter: 2005Q4

REPORT INFORMATION
  Report Type: 
  Country: None (occurrence: None)
  Receive Date: 20051103
  Receipt Date: 20051013
  Transmission Date: 20060501
  Serious: Yes (Life-Threatening, Hospitalization)
  Sender: FDA-Public Use
  Company Number: EWC051046502

PATIENT
  Age: 13 Year
  Sex: Male
  Weight: 48 kg

DRUGS (2)
  1. STRATTERA [Suspect]
     Indication: ATTENTION DEFICIT/HYPERACTIVITY DISORDER
     Dosage: 50 MG/1 DAY
     Dates: start: 20050924, end: 20051005
  2. METHYLPHENIDATE HCL [Concomitant]

REACTIONS (10)
  - ADJUSTMENT DISORDER [None]
  - AFFECT LABILITY [None]
  - AGGRESSION [None]
  - ANGER [None]
  - DEPRESSED MOOD [None]
  - EMOTIONAL DISORDER [None]
  - OVERDOSE [None]
  - REFUSAL OF TREATMENT BY PATIENT [None]
  - STRESS [None]
  - SUICIDE ATTEMPT [None]
